FAERS Safety Report 18658477 (Version 1)
Quarter: 2020Q4

REPORT INFORMATION
  Report Type: Spontaneous
  Country: US (occurrence: US)
  Receive Date: 20201224
  Receipt Date: 20201224
  Transmission Date: 20210114
  Serious: Yes (Hospitalization, Congenital Anomaly, Other)
  Sender: FDA-Public Use
  Company Number: US-HIKMA PHARMACEUTICALS USA INC.-US-H14001-20-52888

PATIENT
  Sex: Female

DRUGS (1)
  1. OXCARBAZEPINE. [Suspect]
     Active Substance: OXCARBAZEPINE
     Indication: EPILEPSY
     Dosage: UNKNOWN
     Route: 064

REACTIONS (11)
  - Atrial septal defect [Unknown]
  - Congenital epiglottal anomaly [Unknown]
  - Aplasia [Unknown]
  - Hypotonia neonatal [Unknown]
  - Dandy-Walker syndrome [Unknown]
  - Soft tissue mass [Unknown]
  - Hypoglycaemia [Unknown]
  - Laryngeal hypertrophy [Unknown]
  - Syndactyly [Unknown]
  - Foetal exposure during pregnancy [Unknown]
  - Polydactyly [Unknown]
